FAERS Safety Report 12068704 (Version 1)
Quarter: 2016Q1

REPORT INFORMATION
  Report Type: Spontaneous
  Country: FR (occurrence: FR)
  Receive Date: 20160211
  Receipt Date: 20160211
  Transmission Date: 20160526
  Serious: Yes (Hospitalization)
  Sender: FDA-Public Use
  Company Number: FR-ASTRAZENECA-2016SE12733

PATIENT
  Age: 785 Month
  Sex: Male

DRUGS (5)
  1. APROVEL [Concomitant]
     Active Substance: IRBESARTAN
  2. TRILEPTAL [Suspect]
     Active Substance: OXCARBAZEPINE
     Indication: ABNORMAL BEHAVIOUR
     Route: 048
     Dates: end: 201511
  3. SELOKEEN [Concomitant]
     Active Substance: METOPROLOL
  4. ENTOCORT [Suspect]
     Active Substance: BUDESONIDE
     Route: 048
  5. ASPIRIN. [Concomitant]
     Active Substance: ASPIRIN

REACTIONS (2)
  - Generalised tonic-clonic seizure [Recovered/Resolved]
  - Rectal tenesmus [Unknown]

NARRATIVE: CASE EVENT DATE: 201506
